FAERS Safety Report 25347577 (Version 1)
Quarter: 2025Q2

REPORT INFORMATION
  Report Type: Spontaneous
  Country: US (occurrence: None)
  Receive Date: 20250521
  Receipt Date: 20250521
  Transmission Date: 20250716
  Serious: Yes (Life-Threatening, Other)
  Sender: FDA-CTU
  Company Number: None

PATIENT
  Age: 28 Year
  Sex: Female
  Weight: 65.25 kg

DRUGS (5)
  1. DIHYDROERGOTAMINE [Suspect]
     Active Substance: DIHYDROERGOTAMINE
     Indication: Status migrainosus
     Dates: start: 20250520
  2. LEXAPRO [Concomitant]
     Active Substance: ESCITALOPRAM OXALATE
  3. Propranolo [Concomitant]
  4. ZYRTEC [Concomitant]
     Active Substance: CETIRIZINE HYDROCHLORIDE
  5. TYLENOL [Concomitant]
     Active Substance: ACETAMINOPHEN

REACTIONS (9)
  - Flushing [None]
  - Muscle tightness [None]
  - Rash [None]
  - Anxiety [None]
  - Panic attack [None]
  - Heart rate increased [None]
  - Akathisia [None]
  - Self-injurious ideation [None]
  - Drug hypersensitivity [None]

NARRATIVE: CASE EVENT DATE: 20250520
